FAERS Safety Report 6145389-0 (Version None)
Quarter: 2009Q2

REPORT INFORMATION
  Report Type: 
  Country: None (occurrence: None)
  Receive Date: 20090402
  Receipt Date: 20090318
  Transmission Date: 20091009
  Serious: Yes (Death)
  Sender: FDA-Public Use
  Company Number: 2009S1004749

PATIENT
  Age: 32 Year
  Sex: Male

DRUGS (6)
  1. ZYPREXA [Suspect]
     Dosage: 10 MG;DAILY;ORAL
     Route: 048
  2. BENADRYL [Suspect]
  3. SEROQUEL [Suspect]
  4. ESCITALOPRAM OXALATE [Suspect]
  5. TRAZODONE HCL [Suspect]
  6. DILANTIN [Suspect]

REACTIONS (3)
  - COMPLETED SUICIDE [None]
  - DILATATION VENTRICULAR [None]
  - DRUG TOXICITY [None]
